FAERS Safety Report 25974810 (Version 1)
Quarter: 2025Q4

REPORT INFORMATION
  Report Type: Report from Study
  Country: KR (occurrence: KR)
  Receive Date: 20251029
  Receipt Date: 20251029
  Transmission Date: 20260118
  Serious: Yes (Hospitalization)
  Sender: GILEAD
  Company Number: KR-GILEAD-2025-0734156

PATIENT
  Sex: Female

DRUGS (19)
  1. SACITUZUMAB GOVITECAN-HZIY [Suspect]
     Active Substance: SACITUZUMAB GOVITECAN-HZIY
     Indication: Triple negative breast cancer
     Dosage: 770 MG
     Route: 042
     Dates: start: 20251010
  2. CREVATIN [Concomitant]
     Indication: Hyperlipidaemia
     Dosage: UNK
     Dates: start: 2024
  3. LYRICA [Concomitant]
     Active Substance: PREGABALIN
     Indication: Peripheral sensory neuropathy
     Dosage: UNK
     Dates: start: 20240105
  4. MEDILAC DS [Concomitant]
     Indication: Constipation
     Dosage: UNK
     Dates: start: 20231102
  5. CELEBREX [Concomitant]
     Active Substance: CELECOXIB
     Indication: Osteoarthritis
     Dosage: UNK
     Dates: start: 20240429
  6. MACPERAN [METOCLOPRAMIDE] [Concomitant]
     Indication: Nausea
     Dosage: UNK
     Dates: start: 20241024
  7. MAGMIL S [Concomitant]
     Indication: Constipation
     Dosage: UNK
     Dates: start: 20141024
  8. TANTUM ACTIV GOLA [Concomitant]
     Indication: Prophylaxis
     Dosage: UNK
     Dates: start: 20240328
  9. ESROBAN [Concomitant]
     Indication: Vulva cyst
     Dosage: UNK
     Dates: start: 20241114
  10. UREA [Concomitant]
     Active Substance: UREA
     Indication: Vulva cyst
     Dosage: UNK
     Dates: start: 20041210
  11. SOKPYEON EN [Concomitant]
     Indication: Vulva cyst
     Dosage: UNK
     Dates: start: 20240814
  12. AMOBUROFEN [Concomitant]
  13. PENIRAMIN [Concomitant]
  14. DEXAMETHASONE [Concomitant]
     Active Substance: DEXAMETHASONE
  15. ALOXI [Concomitant]
     Active Substance: PALONOSETRON HYDROCHLORIDE
  16. TAGAMET [Concomitant]
     Active Substance: CIMETIDINE
  17. MACPERAN [METOCLOPRAMIDE] [Concomitant]
  18. LOPAIN [Concomitant]
  19. BIOFLOR [Concomitant]

REACTIONS (4)
  - Pharyngitis [Not Recovered/Not Resolved]
  - Neutrophil count decreased [Recovered/Resolved]
  - Platelet count decreased [Recovered/Resolved]
  - Neutrophil count decreased [Recovered/Resolved]

NARRATIVE: CASE EVENT DATE: 20251017
